FAERS Safety Report 9189849 (Version 1)
Quarter: 2013Q1

REPORT INFORMATION
  Report Type: Spontaneous
  Country: JP (occurrence: JP)
  Receive Date: 20130326
  Receipt Date: 20130326
  Transmission Date: 20140127
  Serious: Yes (Other)
  Sender: FDA-Public Use
  Company Number: JP-PFIZER INC-2013094774

PATIENT
  Age: 8 Decade
  Sex: Female

DRUGS (2)
  1. LIPITOR [Suspect]
     Dosage: UNK
     Route: 048
  2. GASTER [Suspect]
     Dosage: 20 MG, DAILY
     Route: 048

REACTIONS (2)
  - Blood creatine phosphokinase increased [Unknown]
  - Fall [Unknown]
